FAERS Safety Report 7545179 (Version 6)
Quarter: 2012Q4

REPORT INFORMATION
  Report Type: 
  Country: CA (occurrence: CA)
  Receive Date: 20100818
  Receipt Date: 20120913
  Transmission Date: 20130627
  Serious: Yes (Death, Other)
  Sender: FDA-Public Use
  Company Number: PHHY2010CA52022

PATIENT
  Age: 72 Year
  Sex: Male

DRUGS (2)
  1. SANDOSTATIN LAR [Suspect]
     Indication: COLON CANCER METASTATIC
     Dosage: 10 mg, every 4 weeks
     Route: 030
     Dates: start: 20090224
  2. SANDOSTATIN LAR [Suspect]
     Dosage: 20 mg,  every 4 weeks
     Route: 030
     Dates: end: 20120827

REACTIONS (5)
  - Death [Fatal]
  - Terminal state [Unknown]
  - Blood pressure diastolic decreased [Unknown]
  - Heart rate decreased [Unknown]
  - Chest pain [Unknown]
